FAERS Safety Report 14095776 (Version 1)
Quarter: 2017Q4

REPORT INFORMATION
  Report Type: Spontaneous
  Country: US (occurrence: US)
  Receive Date: 20171017
  Receipt Date: 20171017
  Transmission Date: 20180321
  Serious: No
  Sender: FDA-Public Use
  Company Number: US-009507513-1709USA012585

PATIENT
  Age: 36 Year
  Sex: Male

DRUGS (2)
  1. KEYTRUDA [Suspect]
     Active Substance: PEMBROLIZUMAB
     Indication: HEREDITARY NON-POLYPOSIS COLORECTAL CANCER SYNDROME
  2. KEYTRUDA [Suspect]
     Active Substance: PEMBROLIZUMAB
     Indication: MISMATCH REPAIR CANCER SYNDROME
     Dosage: 200 MG, EVERY THREE WEEKS
     Route: 042
     Dates: start: 20170707

REACTIONS (1)
  - Carcinoembryonic antigen decreased [Unknown]

NARRATIVE: CASE EVENT DATE: 20170707
